FAERS Safety Report 7204525-5 (Version None)
Quarter: 2010Q4

REPORT INFORMATION
  Report Type: 
  Country: None (occurrence: None)
  Receive Date: 20101230
  Receipt Date: 20101216
  Transmission Date: 20110411
  Serious: Yes (Other)
  Sender: FDA-Public Use
  Company Number: PHHY2010CA86074

PATIENT
  Sex: Male

DRUGS (2)
  1. ALISKIREN [Suspect]
  2. BETA BLOCKING AGENTS [Concomitant]

REACTIONS (1)
  - ERECTILE DYSFUNCTION [None]
